FAERS Safety Report 9224824 (Version 1)
Quarter: 2013Q2

REPORT INFORMATION
  Report Type: Spontaneous
  Country: US (occurrence: None)
  Receive Date: 20130409
  Receipt Date: 20130409
  Transmission Date: 20140414
  Serious: No
  Sender: FDA-Public Use
  Company Number: None

PATIENT
  Age: 80 Year
  Sex: Male

DRUGS (1)
  1. FORTEO 20MCG LILLY [Suspect]
     Dates: start: 20130117

REACTIONS (4)
  - Nipple pain [None]
  - Rash [None]
  - Erythema [None]
  - Discomfort [None]
